FAERS Safety Report 5267227-0 (Version None)
Quarter: 2007Q1

REPORT INFORMATION
  Report Type: 
  Country: None (occurrence: None)
  Receive Date: 20070316
  Receipt Date: 20070305
  Transmission Date: 20070707
  Serious: Yes (Hospitalization)
  Sender: FDA-Public Use
  Company Number: FR-ROCHE-485799

PATIENT
  Age: 44 Year
  Sex: Male
  Weight: 103 kg

DRUGS (12)
  1. CLONAZEPAM [Suspect]
     Dosage: 3 DROPS AM, 3 DROPS AT LUNCH TIME AND 6 DROPS IN THE EVENING.
     Route: 048
     Dates: start: 20070122, end: 20070130
  2. KREDEX [Concomitant]
     Indication: CARDIOMYOPATHY
     Route: 048
     Dates: start: 20070111, end: 20070130
  3. METHADONE HCL [Concomitant]
     Indication: DRUG DEPENDENCE
     Route: 048
     Dates: end: 20070130
  4. NEURONTIN [Concomitant]
     Route: 048
     Dates: start: 20070122, end: 20070130
  5. TRIATEC [Concomitant]
     Indication: CARDIOMYOPATHY
     Route: 048
     Dates: start: 20070108
  6. LASIX [Concomitant]
     Indication: CARDIOMYOPATHY
     Route: 048
     Dates: start: 20070105
  7. PLAVIX [Concomitant]
  8. SOLUPRED [Concomitant]
  9. SPIRIVA [Concomitant]
  10. FORADIL [Concomitant]
  11. NICOPATCH [Concomitant]
  12. LOVENOX [Concomitant]

REACTIONS (3)
  - GENERAL PHYSICAL HEALTH DETERIORATION [None]
  - HYPOXIA [None]
  - RESPIRATORY ACIDOSIS [None]
